FAERS Safety Report 8145100-8 (Version None)
Quarter: 2012Q1

REPORT INFORMATION
  Report Type: 
  Country: None (occurrence: None)
  Receive Date: 20120217
  Receipt Date: 20120210
  Transmission Date: 20120608
  Serious: Yes (Other)
  Sender: FDA-Public Use
  Company Number: PHHY2010CA12541

PATIENT
  Sex: Female

DRUGS (3)
  1. ZOLEDRONOC ACID [Suspect]
     Dosage: 5 MG
     Route: 042
     Dates: start: 20110330
  2. CHEMOTHERAPEUTICS [Concomitant]
  3. ZOLEDRONOC ACID [Suspect]
     Indication: OSTEOPOROSIS
     Dosage: 5 MG
     Route: 042
     Dates: start: 20100224

REACTIONS (9)
  - WEIGHT DECREASED [None]
  - VEIN DISORDER [None]
  - HEADACHE [None]
  - POOR VENOUS ACCESS [None]
  - DECREASED APPETITE [None]
  - MALAISE [None]
  - PYREXIA [None]
  - MYALGIA [None]
  - INFLUENZA [None]
